FAERS Safety Report 25998070 (Version 1)
Quarter: 2025Q4

REPORT INFORMATION
  Report Type: Other
  Country: GB (occurrence: GB)
  Receive Date: 20251105
  Receipt Date: 20251105
  Transmission Date: 20260117
  Serious: Yes (Other)
  Sender: ASPEN
  Company Number: None

PATIENT

DRUGS (5)
  1. DEXAMETHASONE [Suspect]
     Active Substance: DEXAMETHASONE
     Indication: Prophylaxis
     Dosage: 16 MILLIGRAM
     Route: 065
  2. EPCORITAMAB [Suspect]
     Active Substance: EPCORITAMAB
     Indication: Diffuse large B-cell lymphoma recurrent
     Dosage: UNK
     Route: 058
     Dates: start: 202505, end: 20250715
  3. FLUOXETINE [Concomitant]
     Active Substance: FLUOXETINE HYDROCHLORIDE
     Indication: Anxiety
     Dosage: UNK
     Route: 065
  4. APIXABAN [Concomitant]
     Active Substance: APIXABAN
     Indication: Pulmonary embolism
     Dosage: UNK
     Route: 065
  5. VALGANCICLOVIR [Concomitant]
     Active Substance: VALGANCICLOVIR
     Indication: Cytomegalovirus infection
     Dosage: UNK
     Route: 065

REACTIONS (6)
  - Off label use [Unknown]
  - Suicidal ideation [Unknown]
  - Cytokine release syndrome [Unknown]
  - Haemophagocytic lymphohistiocytosis [Unknown]
  - Pyrexia [Unknown]
  - Neurosis [Unknown]

NARRATIVE: CASE EVENT DATE: 20250101
